FAERS Safety Report 8818736 (Version 2)
Quarter: 2012Q4

REPORT INFORMATION
  Report Type: Spontaneous
  Country: US (occurrence: None)
  Receive Date: 20121002
  Receipt Date: 20121203
  Transmission Date: 20130627
  Serious: Yes (Hospitalization, Other)
  Sender: FDA-Public Use
  Company Number: ADR-2012-01784

PATIENT
  Sex: Female

DRUGS (2)
  1. BACLOFEN INTRATHECAL (BACLOFEN INJECTION) [Concomitant]
     Indication: SPASTICITY
  2. BACLOFEN INTRATHECAL (BACLOFEN INJECTION) [Concomitant]
     Indication: CEREBRAL PALSY

REACTIONS (7)
  - Headache [None]
  - Vomiting [None]
  - Incision site infection [None]
  - Muscle spasms [None]
  - Disease recurrence [None]
  - Scar [None]
  - Impaired healing [None]
